FAERS Safety Report 4636785-9 (Version None)
Quarter: 2005Q2

REPORT INFORMATION
  Report Type: 
  Country: None (occurrence: None)
  Receive Date: 20050414
  Receipt Date: 20050330
  Transmission Date: 20051028
  Serious: Yes (Other)
  Sender: FDA-Public Use
  Company Number: 2005-0008198

PATIENT
  Sex: Female

DRUGS (1)
  1. HEPSERA [Suspect]
     Indication: HEPATITIS B
     Dosage: ORAL
     Route: 048
     Dates: start: 20050101

REACTIONS (1)
  - PERIORBITAL OEDEMA [None]
